FAERS Safety Report 6457918-8 (Version None)
Quarter: 2009Q4

REPORT INFORMATION
  Report Type: 
  Country: None (occurrence: None)
  Receive Date: 20091125
  Receipt Date: 20091117
  Transmission Date: 20100525
  Serious: Yes (Other)
  Sender: FDA-Public Use
  Company Number: CH-B.I. PHARMACEUTICALS,INC./RIDGEFIELD-2009-SI-00049SI

PATIENT
  Age: 94 Year
  Sex: Male

DRUGS (14)
  1. PRADIF [Suspect]
     Route: 048
     Dates: start: 20090805, end: 20090810
  2. PENICILLINN G [Suspect]
     Indication: BACTERAEMIA
     Dates: start: 20090727, end: 20090804
  3. CO-AMOXICILLIN SANDOZ [Suspect]
     Indication: PYREXIA
     Route: 048
     Dates: start: 20090724, end: 20090727
  4. ROCEPHIN [Suspect]
     Indication: BRONCHOPNEUMONIA
     Route: 042
     Dates: start: 20090814, end: 20090822
  5. VANCOMYCIN HCL [Suspect]
     Dates: start: 20090825
  6. ENOXAPARIN SODIUM [Suspect]
     Dates: start: 20090724, end: 20090810
  7. PERFALGAN [Suspect]
     Route: 042
     Dates: start: 20090824, end: 20090827
  8. LASIX [Suspect]
     Route: 048
     Dates: start: 20090727, end: 20090804
  9. TORSEMIDE [Suspect]
     Route: 048
     Dates: start: 20090806, end: 20090810
  10. LAXOBERON [Concomitant]
     Route: 048
     Dates: start: 20090730, end: 20090810
  11. TEMGESIC [Concomitant]
     Route: 048
     Dates: start: 20090724, end: 20090804
  12. VITARUBIN [Concomitant]
     Route: 058
     Dates: start: 20090728, end: 20090810
  13. FOLVITE [Concomitant]
     Route: 048
     Dates: start: 20090729, end: 20090810
  14. PLENDIL [Concomitant]
     Indication: HYPERTENSION

REACTIONS (5)
  - BRONCHOPNEUMONIA [None]
  - EOSINOPHILIA [None]
  - HEPATOCELLULAR INJURY [None]
  - LIVER INJURY [None]
  - RASH ERYTHEMATOUS [None]
